FAERS Safety Report 12882710 (Version 1)
Quarter: 2016Q4

REPORT INFORMATION
  Report Type: Spontaneous
  Country: PL (occurrence: PL)
  Receive Date: 20161025
  Receipt Date: 20161025
  Transmission Date: 20170207
  Serious: Yes (Death)
  Sender: FDA-Public Use
  Company Number: PL-NORTHSTAR HEALTHCARE HOLDINGS-PL-2016NSR001859

PATIENT
  Age: 25 Year
  Sex: Female

DRUGS (1)
  1. BACLOFEN. [Suspect]
     Active Substance: BACLOFEN
     Indication: PRODUCT USED FOR UNKNOWN INDICATION
     Dosage: 25 MG, UNK

REACTIONS (2)
  - Toxicity to various agents [Fatal]
  - Overdose [Fatal]
